FAERS Safety Report 9057264 (Version 1)
Quarter: 2013Q1

REPORT INFORMATION
  Report Type: Report from Study
  Country: JP (occurrence: JP)
  Receive Date: 20130131
  Receipt Date: 20130131
  Transmission Date: 20140127
  Serious: Yes (Other)
  Sender: FDA-Public Use
  Company Number: JP-GLAXOSMITHKLINE-B0860284A

PATIENT
  Age: 69 None
  Sex: Female
  Weight: 53 kg

DRUGS (12)
  1. TYKERB [Suspect]
     Indication: BREAST CANCER
     Route: 048
     Dates: start: 20091006
  2. XELODA [Suspect]
     Route: 048
     Dates: start: 20091006, end: 20091214
  3. XELODA [Suspect]
     Route: 048
     Dates: start: 20100127
  4. TAKEPRON [Concomitant]
     Indication: GASTROOESOPHAGEAL REFLUX PROPHYLAXIS
     Route: 048
  5. CARDENALIN [Concomitant]
     Indication: HYPERTENSION
     Route: 048
  6. AMLODIN [Concomitant]
     Indication: HYPERTENSION
     Route: 048
  7. DIOVAN [Concomitant]
     Indication: HYPERTENSION
     Route: 048
  8. MOHRUS TAPE [Concomitant]
     Indication: BACK PAIN
     Route: 062
  9. MYSLEE [Concomitant]
     Indication: INSOMNIA
     Route: 048
  10. LOPEMIN [Concomitant]
     Indication: PROPHYLAXIS AGAINST DIARRHOEA
     Route: 048
  11. CHINESE MEDICINE [Concomitant]
     Indication: PROPHYLAXIS
     Route: 048
  12. PYDOXAL [Concomitant]
     Indication: PROPHYLAXIS
     Route: 048
     Dates: start: 20100308

REACTIONS (13)
  - Neurotoxicity [Recovered/Resolved]
  - Cellulitis [Recovered/Resolved]
  - Stomatitis [Recovered/Resolved]
  - Constipation [Recovered/Resolved]
  - Fatigue [Recovered/Resolved]
  - Rash [Recovered/Resolved]
  - Nasopharyngitis [Recovered/Resolved]
  - Paronychia [Recovered/Resolved]
  - Palmar-plantar erythrodysaesthesia syndrome [Recovered/Resolved]
  - Diarrhoea [Recovered/Resolved]
  - Erythema [Recovered/Resolved]
  - White blood cell count decreased [Recovered/Resolved]
  - Neutrophil count decreased [Recovered/Resolved]
